FAERS Safety Report 23925935 (Version 3)
Quarter: 2024Q4

REPORT INFORMATION
  Report Type: Spontaneous
  Country: FI (occurrence: FI)
  Receive Date: 20240531
  Receipt Date: 20241127
  Transmission Date: 20250115
  Serious: Yes (Hospitalization, Other)
  Sender: NOVARTIS
  Company Number: FI-002147023-NVSC2024FI110151

PATIENT
  Age: 39 Year
  Sex: Male

DRUGS (8)
  1. COSENTYX [Suspect]
     Active Substance: SECUKINUMAB
     Indication: Hidradenitis
     Dosage: 300 MG (ON WEEKS 0, 1, 2, 3 AND 4 THEN EVERY 2 WEEKS)
     Route: 058
     Dates: start: 202310
  2. COSENTYX [Suspect]
     Active Substance: SECUKINUMAB
     Dosage: 300 MG, Q2W
     Route: 065
     Dates: start: 202405
  3. Trexan [Concomitant]
     Indication: Nausea
     Dosage: 15 MG, QW
     Route: 065
     Dates: end: 202408
  4. FOLIC ACID [Concomitant]
     Active Substance: FOLIC ACID
     Indication: Product used for unknown indication
     Dosage: UNK
     Route: 065
  5. CLOBETASOL [Concomitant]
     Active Substance: CLOBETASOL
     Indication: Product used for unknown indication
     Dosage: UNK, QD
     Route: 065
  6. CEFUROXIME [Concomitant]
     Active Substance: CEFUROXIME
     Indication: Antibiotic prophylaxis
     Dosage: UNK
     Route: 065
     Dates: start: 202408, end: 202409
  7. CIPROFLOXACIN [Concomitant]
     Active Substance: CIPROFLOXACIN
     Indication: Antibiotic therapy
     Dosage: UNK
     Route: 065
     Dates: start: 202411
  8. ACETIC ACID [Concomitant]
     Active Substance: ACETIC ACID
     Indication: Antibiotic therapy
     Dosage: UNK (FORMULATION: COMPRESSION)
     Route: 065

REACTIONS (10)
  - Hidradenitis [Not Recovered/Not Resolved]
  - Condition aggravated [Unknown]
  - Secretion discharge [Unknown]
  - Gait disturbance [Unknown]
  - Arthralgia [Unknown]
  - Erythema [Unknown]
  - Abscess [Unknown]
  - Infection [Unknown]
  - Skin infection [Unknown]
  - Pseudomonas infection [Unknown]

NARRATIVE: CASE EVENT DATE: 20240506
